FAERS Safety Report 4417509-7 (Version None)
Quarter: 2004Q3

REPORT INFORMATION
  Report Type: 
  Country: None (occurrence: None)
  Receive Date: 20040804
  Receipt Date: 20040723
  Transmission Date: 20050211
  Serious: Yes (Death)
  Sender: FDA-Public Use
  Company Number: PERL20040001

PATIENT
  Age: 40 Year
  Sex: Female

DRUGS (3)
  1. OXYCODONE HCL [Suspect]
     Dosage: PO
     Route: 048
  2. FENTANYL [Suspect]
  3. NORTRIPTYLINE HCL [Suspect]

REACTIONS (1)
  - MULTIPLE DRUG OVERDOSE ACCIDENTAL [None]
